FAERS Safety Report 21646657 (Version 2)
Quarter: 2022Q4

REPORT INFORMATION
  Report Type: Spontaneous
  Country: JP (occurrence: JP)
  Receive Date: 20221127
  Receipt Date: 20221219
  Transmission Date: 20230113
  Serious: Yes (Other)
  Sender: FDA-Public Use
  Company Number: JP-TEVA-2022-JP-004149J

PATIENT
  Sex: Female

DRUGS (1)
  1. TRIAZOLAM [Suspect]
     Active Substance: TRIAZOLAM
     Indication: Product used for unknown indication
     Dosage: .25 MILLIGRAM DAILY;
     Route: 048
     Dates: start: 2020, end: 20221121

REACTIONS (1)
  - Cerebellar atrophy [Not Recovered/Not Resolved]

NARRATIVE: CASE EVENT DATE: 20221120
